FAERS Safety Report 9224324 (Version 4)
Quarter: 2013Q4

REPORT INFORMATION
  Report Type: Report from Study
  Country: US (occurrence: US)
  Receive Date: 20130411
  Receipt Date: 20131031
  Transmission Date: 20140711
  Serious: Yes (Death, Hospitalization, Other)
  Sender: FDA-Public Use
  Company Number: PHEH2013US007964

PATIENT
  Age: 88 Year
  Sex: Male
  Weight: 65 kg

DRUGS (7)
  1. GLEEVEC [Suspect]
     Indication: CHRONIC MYELOID LEUKAEMIA
     Dosage: 100 MG, BID
     Route: 048
     Dates: start: 20130226
  2. GLEEVEC [Suspect]
     Dosage: 400 MG, DAILY
     Route: 048
     Dates: start: 20130103, end: 20130905
  3. DIOVAN [Concomitant]
     Dosage: UNK UKN, UNK
     Route: 048
  4. ASPIRIN [Concomitant]
     Dosage: UNK UKN, UNK
     Route: 048
  5. PLAVIX [Concomitant]
     Dosage: UNK UKN, UNK
     Route: 048
  6. XARELTO [Concomitant]
     Dosage: UNK UKN, UNK
     Route: 048
  7. MEGACE [Concomitant]
     Dosage: UNK UKN, UNK
     Route: 048

REACTIONS (7)
  - Pleural effusion [Fatal]
  - Feeling abnormal [Unknown]
  - Infection [Unknown]
  - Pneumonia [Recovered/Resolved]
  - Dyspnoea [Unknown]
  - Cough [Unknown]
  - Cardiomegaly [Unknown]
